FAERS Safety Report 16647007 (Version 1)
Quarter: 2019Q3

REPORT INFORMATION
  Report Type: Spontaneous
  Country: US (occurrence: US)
  Receive Date: 20190730
  Receipt Date: 20190730
  Transmission Date: 20191004
  Serious: Yes (Hospitalization, Other)
  Sender: FDA-Public Use
  Company Number: US-MYLANLABS-2019M1070622

PATIENT
  Age: 34 Year
  Sex: Female

DRUGS (5)
  1. BUPIVACAINE. [Suspect]
     Active Substance: BUPIVACAINE
     Indication: LOCAL ANAESTHESIA
     Route: 065
  2. CALCIUM [Suspect]
     Active Substance: CALCIUM
     Indication: SUPPLEMENTATION THERAPY
     Route: 048
  3. VITAMIN D                          /07503901/ [Suspect]
     Active Substance: VITAMIN D NOS
     Indication: SUPPLEMENTATION THERAPY
     Route: 048
  4. HYDROXYPROGESTERONE [Suspect]
     Active Substance: HYDROXYPROGESTERONE
     Indication: POSTPONEMENT OF PRETERM DELIVERY
     Dosage: RECEIVED HYDROXYPROGESTERONE INCONSISTENTLY DURING PREGNANCY
     Route: 030
  5. METHADONE [Suspect]
     Active Substance: METHADONE HYDROCHLORIDE
     Indication: PRODUCT USED FOR UNKNOWN INDICATION
     Dosage: SINCE 21 WEEK OF GESTATION
     Route: 065

REACTIONS (4)
  - Femoral neck fracture [Recovering/Resolving]
  - Osteoporosis [Unknown]
  - Drug dependence [Unknown]
  - Maternal exposure during pregnancy [Recovered/Resolved]
